FAERS Safety Report 13042858 (Version 2)
Quarter: 2016Q4

REPORT INFORMATION
  Report Type: Report from Study
  Country: CO (occurrence: CO)
  Receive Date: 20161219
  Receipt Date: 20161222
  Transmission Date: 20170207
  Serious: Yes (Death, Hospitalization, Other)
  Sender: FDA-Public Use
  Company Number: CO-ACTELION-A-US2016-139699

PATIENT
  Age: 70 Year
  Sex: Female

DRUGS (1)
  1. VENTAVIS [Suspect]
     Active Substance: ILOPROST
     Indication: PULMONARY HYPERTENSION
     Dosage: 1 DF, 6XDAY
     Route: 055
     Dates: start: 20131114, end: 20161209

REACTIONS (4)
  - Dyspnoea [Not Recovered/Not Resolved]
  - Cardio-respiratory arrest [Fatal]
  - Oedema peripheral [Recovering/Resolving]
  - Pneumonia [Not Recovered/Not Resolved]

NARRATIVE: CASE EVENT DATE: 20160625
